FAERS Safety Report 18056229 (Version 1)
Quarter: 2020Q3

REPORT INFORMATION
  Report Type: Spontaneous
  Country: US (occurrence: US)
  Receive Date: 20200722
  Receipt Date: 20200722
  Transmission Date: 20201103
  Serious: Yes (Other)
  Sender: FDA-Public Use
  Company Number: US-ASTRAZENECA-2020SE89842

PATIENT
  Sex: Female

DRUGS (1)
  1. BUDESONIDE AND FORMOTEROL [Suspect]
     Active Substance: BUDESONIDE\FORMOTEROL
     Indication: CHEST DISCOMFORT
     Dosage: 160?4.5 MCG, SHE TOOK THE MEDICATION TWICE
     Route: 055

REACTIONS (6)
  - Product use in unapproved indication [Unknown]
  - SARS-CoV-2 test negative [Unknown]
  - Palpitations [Unknown]
  - Drug ineffective [Unknown]
  - Suspected COVID-19 [Unknown]
  - Dizziness [Unknown]
